FAERS Safety Report 23034619 (Version 1)
Quarter: 2023Q4

REPORT INFORMATION
  Report Type: Report from Study
  Country: DE (occurrence: DE)
  Receive Date: 20231005
  Receipt Date: 20231005
  Transmission Date: 20240109
  Serious: Yes (Other)
  Sender: FDA-Public Use
  Company Number: DE-Merck Healthcare KGaA-2023477590

PATIENT
  Age: 41 Year
  Sex: Male

DRUGS (2)
  1. MAVENCLAD [Suspect]
     Active Substance: CLADRIBINE
     Indication: Multiple sclerosis
     Dosage: YEAR ONE WEEK ONE THERAPY
     Route: 048
     Dates: start: 20230825
  2. MAVENCLAD [Suspect]
     Active Substance: CLADRIBINE
     Dosage: YEAR ONE WEEK TWO THERAPY: PRESCRIBED DOSE OF 2 TABLETS A DAYS UNTIL 29-SEP-2023.
     Route: 048
     Dates: start: 20230925

REACTIONS (2)
  - Laryngeal oedema [Not Recovered/Not Resolved]
  - Pharyngeal swelling [Not Recovered/Not Resolved]

NARRATIVE: CASE EVENT DATE: 20230927
